FAERS Safety Report 20188587 (Version 5)
Quarter: 2022Q1

REPORT INFORMATION
  Report Type: Report from Study
  Country: US (occurrence: US)
  Receive Date: 20211215
  Receipt Date: 20220210
  Transmission Date: 20220423
  Serious: Yes (Death, Hospitalization, Other)
  Sender: FDA-Public Use
  Company Number: US-GILEAD-2021-0561401

PATIENT
  Age: 73 Year
  Sex: Female

DRUGS (3)
  1. AMBRISENTAN [Suspect]
     Active Substance: AMBRISENTAN
     Indication: Pulmonary hypertension
     Dosage: 10 MG, QD
     Route: 048
     Dates: start: 20200120
  2. REMODULIN [Concomitant]
     Active Substance: TREPROSTINIL
  3. OXYGEN [Concomitant]
     Active Substance: OXYGEN

REACTIONS (9)
  - Death [Fatal]
  - Dysphagia [Unknown]
  - Dyspnoea [Not Recovered/Not Resolved]
  - Respiratory distress [Unknown]
  - Asthenia [Unknown]
  - Diarrhoea [Unknown]
  - Dizziness [Unknown]
  - Herpes zoster [Not Recovered/Not Resolved]
  - Hypotension [Unknown]

NARRATIVE: CASE EVENT DATE: 20220202
